FAERS Safety Report 9201488 (Version 3)
Quarter: 2014Q4

REPORT INFORMATION
  Report Type: Spontaneous
  Country: US (occurrence: US)
  Receive Date: 20130401
  Receipt Date: 20141125
  Transmission Date: 20150529
  Serious: Yes (Hospitalization, Other)
  Sender: FDA-Public Use
  Company Number: US-BAYER-2013-037508

PATIENT
  Age: 13 Year
  Sex: Female
  Weight: 101.59 kg

DRUGS (21)
  1. ZOCOR [Concomitant]
     Active Substance: SIMVASTATIN
  2. GIANVI [Suspect]
     Active Substance: DROSPIRENONE\ETHINYL ESTRADIOL
     Dosage: UNK
     Route: 048
     Dates: start: 20120516, end: 201208
  3. TYLENOL [Concomitant]
     Active Substance: ACETAMINOPHEN
  4. MORPHINE [Concomitant]
     Active Substance: MORPHINE
  5. SIMVASTATIN. [Concomitant]
     Active Substance: SIMVASTATIN
     Dosage: 10 MG, UNK
     Route: 048
     Dates: start: 20120507, end: 20120718
  6. IBUPROFEN. [Concomitant]
     Active Substance: IBUPROFEN
     Dosage: 400 MG, UNK
     Route: 048
     Dates: start: 20120807
  7. ZOFRAN [Concomitant]
     Active Substance: ONDANSETRON HYDROCHLORIDE
  8. CEFPROZIL. [Concomitant]
     Active Substance: CEFPROZIL
  9. AZITHROMYCIN [Concomitant]
     Active Substance: AZITHROMYCIN ANHYDROUS
  10. EPHEDRA [Concomitant]
     Active Substance: EPHEDRA
     Dosage: DAILY
     Route: 048
  11. YAZ [Suspect]
     Active Substance: DROSPIRENONE\ETHINYL ESTRADIOL
     Dosage: UNK
     Route: 048
     Dates: start: 201205
  12. PREVACID [Concomitant]
     Active Substance: LANSOPRAZOLE
     Dosage: 30 MG, 1 TAB DAILY
     Route: 048
     Dates: start: 20100222
  13. LANSOPRAZOLE. [Concomitant]
     Active Substance: LANSOPRAZOLE
     Dosage: 30 MG, UNK
     Route: 048
     Dates: start: 20120507
  14. FOCALIN [Concomitant]
     Active Substance: DEXMETHYLPHENIDATE HYDROCHLORIDE
     Dosage: 20 MG, 1 TAB DAILY
     Route: 048
     Dates: start: 20100823
  15. CEFTRIAXONE. [Concomitant]
     Active Substance: CEFTRIAXONE
  16. FOCALIN [Concomitant]
     Active Substance: DEXMETHYLPHENIDATE HYDROCHLORIDE
     Dosage: 20 UNK, UNK
     Route: 048
     Dates: start: 20120619
  17. METFORMIN [Concomitant]
     Active Substance: METFORMIN HYDROCHLORIDE
     Dosage: 750 MG, 1 TAB WITH DINNER FOR 2 WEEKS, THEN 2 TABS WITH DINNER
     Route: 048
     Dates: start: 20110726
  18. METFORMIN HCL [Concomitant]
     Active Substance: METFORMIN HYDROCHLORIDE
     Dosage: 750 MG, UNK
     Route: 048
     Dates: start: 20120507, end: 20120718
  19. CEFZIL [Concomitant]
     Active Substance: CEFPROZIL
     Dosage: UNK
     Route: 048
     Dates: start: 20120813
  20. ROCEPHIN [Concomitant]
     Active Substance: CEFTRIAXONE SODIUM
  21. ZITHROMAX [Concomitant]
     Active Substance: AZITHROMYCIN DIHYDRATE

REACTIONS (17)
  - Haemoptysis [None]
  - Anxiety [None]
  - Attention deficit/hyperactivity disorder [None]
  - Thrombophlebitis superficial [None]
  - Injury [None]
  - Pain [None]
  - Dyspnoea [None]
  - Chest pain [None]
  - Pulmonary pain [None]
  - Abasia [None]
  - Cerebrovascular accident [None]
  - General physical health deterioration [None]
  - Peripheral swelling [None]
  - Deep vein thrombosis [None]
  - Pulmonary embolism [None]
  - Pain in extremity [None]
  - Emotional distress [None]

NARRATIVE: CASE EVENT DATE: 20120806
